FAERS Safety Report 9510083 (Version 2)
Quarter: 2013Q3

REPORT INFORMATION
  Report Type: Spontaneous
  Country: US (occurrence: US)
  Receive Date: 20130909
  Receipt Date: 20130909
  Transmission Date: 20140515
  Serious: Yes (Hospitalization)
  Sender: FDA-Public Use
  Company Number: US-PURDUE-USA-2013-0104498

PATIENT
  Sex: Male

DRUGS (1)
  1. SENOKOT-S [Suspect]
     Indication: PRODUCT USED FOR UNKNOWN INDICATION
     Dosage: 3 TABLET, SINGLE
     Route: 048
     Dates: start: 20130710

REACTIONS (2)
  - Angiopathy [Unknown]
  - Faeces discoloured [Unknown]
